FAERS Safety Report 5707695-0 (Version None)
Quarter: 2008Q2

REPORT INFORMATION
  Report Type: 
  Country: None (occurrence: None)
  Receive Date: 20080416
  Receipt Date: 20080410
  Transmission Date: 20081010
  Serious: Yes (Other)
  Sender: FDA-Public Use
  Company Number: DE-ALLERGAN-0800283US

PATIENT
  Age: 47 Year
  Sex: Female

DRUGS (2)
  1. BOTOX [Suspect]
     Indication: BLADDER SPASM
     Dosage: UNK, SINGLE
     Dates: start: 20071026, end: 20071026
  2. MICTONORM [Concomitant]
     Dosage: UNK, TID
     Route: 048

REACTIONS (1)
  - MUSCULAR WEAKNESS [None]
